FAERS Safety Report 6013603-8 (Version None)
Quarter: 2008Q4

REPORT INFORMATION
  Report Type: 
  Country: None (occurrence: None)
  Receive Date: 20081219
  Receipt Date: 20081216
  Transmission Date: 20090506
  Serious: Yes (Hospitalization)
  Sender: FDA-Public Use
  Company Number: US-JNJFOC-20081003343

PATIENT
  Sex: Female
  Weight: 56.7 kg

DRUGS (7)
  1. ORTHO EVRA [Suspect]
     Indication: DRUG USE FOR UNKNOWN INDICATION
     Route: 062
  2. FLEXERIL [Concomitant]
  3. BACTRIM [Concomitant]
     Indication: URINARY TRACT INFECTION
  4. WELLBUTRIN [Concomitant]
  5. ACCOLATE [Concomitant]
  6. ALLERGY SHOTS [Concomitant]
  7. INHALERS [Concomitant]

REACTIONS (1)
  - LACUNAR INFARCTION [None]
